FAERS Safety Report 4827846-X (Version None)
Quarter: 2005Q4

REPORT INFORMATION
  Report Type: 
  Country: None (occurrence: None)
  Receive Date: 20051114
  Receipt Date: 20051114
  Transmission Date: 20060501
  Serious: Yes (Life-Threatening, Hospitalization)
  Sender: FDA-Public Use
  Company Number: None

PATIENT
  Sex: Male

DRUGS (1)
  1. MEROPENEM 1 GRAM [Suspect]
     Indication: PNEUMONIA
     Dosage: 1 GRAM  Q8H   IV
     Route: 042
     Dates: start: 20050914, end: 20050929

REACTIONS (1)
  - CONVULSION [None]
